FAERS Safety Report 4668992-3 (Version None)
Quarter: 2005Q2

REPORT INFORMATION
  Report Type: 
  Country: None (occurrence: None)
  Receive Date: 20050523
  Receipt Date: 20050512
  Transmission Date: 20051028
  Serious: Yes (Hospitalization, Other)
  Sender: FDA-Public Use
  Company Number: HCM-0070

PATIENT
  Age: 73 Year
  Sex: Male

DRUGS (7)
  1. HYCAMTIN [Suspect]
     Dosage: 1.1MG PER DAY
     Route: 042
     Dates: start: 20031014, end: 20031017
  2. MAGLAX [Concomitant]
     Dosage: 990MG PER DAY
     Route: 048
     Dates: start: 20031017, end: 20031113
  3. FILGRASTIM [Concomitant]
     Dosage: 75UG PER DAY
     Route: 042
     Dates: start: 20031021, end: 20031028
  4. DISOPYRAMIDE PHOSPHATE [Concomitant]
     Dosage: 200MG PER DAY
     Route: 048
     Dates: start: 20031017, end: 20031113
  5. VERAPAMIL HYDROCHLORIDE [Concomitant]
     Dosage: 120MG PER DAY
     Route: 048
     Dates: start: 20031017, end: 20031113
  6. DIGOXIN [Concomitant]
     Dosage: .28U PER DAY
     Route: 048
     Dates: start: 20031017, end: 20031113
  7. PREDNISOLONE [Concomitant]
     Dosage: 1TAB PER DAY
     Route: 048
     Dates: start: 20031017, end: 20031113

REACTIONS (5)
  - ANAEMIA [None]
  - BLOOD LACTATE DEHYDROGENASE DECREASED [None]
  - LEUKOPENIA [None]
  - LYMPHOCYTE COUNT DECREASED [None]
  - WHITE BLOOD CELL COUNT DECREASED [None]
